FAERS Safety Report 7916614-8 (Version None)
Quarter: 2011Q4

REPORT INFORMATION
  Report Type: 
  Country: None (occurrence: None)
  Receive Date: 20111116
  Receipt Date: 20111110
  Transmission Date: 20120403
  Serious: Yes (Other)
  Sender: FDA-Public Use
  Company Number: US-PFIZER INC-2011276288

PATIENT
  Sex: Female
  Weight: 70.295 kg

DRUGS (1)
  1. TOVIAZ [Suspect]
     Indication: HYPERTONIC BLADDER
     Dosage: 4 MG, DAILY
     Route: 048
     Dates: start: 20111001, end: 20111001

REACTIONS (2)
  - URINARY TRACT INFECTION [None]
  - FUNGAL INFECTION [None]
